FAERS Safety Report 7199230-8 (Version None)
Quarter: 2010Q4

REPORT INFORMATION
  Report Type: 
  Country: None (occurrence: None)
  Receive Date: 20101228
  Receipt Date: 20101220
  Transmission Date: 20110411
  Serious: Yes (Other)
  Sender: FDA-Public Use
  Company Number: JP-ASTELLAS-2010JP007527

PATIENT
  Age: 1 Year
  Sex: Female

DRUGS (6)
  1. PROGRAF [Suspect]
     Indication: PROPHYLAXIS AGAINST GRAFT VERSUS HOST DISEASE
     Route: 065
  2. METHOTREXATE [Concomitant]
     Indication: PROPHYLAXIS AGAINST GRAFT VERSUS HOST DISEASE
     Route: 065
  3. BUSULFAN [Concomitant]
     Dosage: UNK MG/KG, UNKNOWN/D
     Route: 065
  4. VP-16 [Concomitant]
     Dosage: UNK MG/KG, UNKNOWN/D
     Route: 065
  5. CYCLOPHOSPHAMIDE [Concomitant]
     Dosage: UNK MG/KG, UNKNOWN/D
     Route: 065
  6. ANTI-THYMOCYTE GLOBULIN NOS [Concomitant]
     Dosage: UNK MG/KG, UNKNOWN/D
     Route: 065

REACTIONS (1)
  - THROMBOTIC MICROANGIOPATHY [None]
